FAERS Safety Report 9196333 (Version 3)
Quarter: 2013Q2

REPORT INFORMATION
  Report Type: Report from Study
  Country: AT (occurrence: AT)
  Receive Date: 20130328
  Receipt Date: 20130604
  Transmission Date: 20140414
  Serious: Yes (Death, Hospitalization)
  Sender: FDA-Public Use
  Company Number: AT-CELGENEUS-009-21660-13031931

PATIENT
  Age: 52 Year
  Sex: Female
  Weight: 59 kg

DRUGS (27)
  1. ABRAXANE [Suspect]
     Indication: BREAST CANCER METASTATIC
     Route: 041
     Dates: start: 20130208
  2. ABRAXANE [Suspect]
     Route: 041
     Dates: start: 20130301, end: 20130318
  3. 5HT3 ANTAGONIST [Concomitant]
     Indication: PRODUCT USED FOR UNKNOWN INDICATION
     Route: 065
  4. VENDAL [Concomitant]
     Indication: PAIN
     Route: 065
     Dates: start: 20130207
  5. VENDAL [Concomitant]
     Route: 048
     Dates: start: 20130207, end: 20130209
  6. GRANISETRON [Concomitant]
     Indication: VOMITING
     Route: 041
     Dates: start: 20130208, end: 20130208
  7. OLEOVIT [Concomitant]
     Indication: PROPHYLAXIS
     Route: 048
     Dates: start: 20130211, end: 20130211
  8. MORAPID [Concomitant]
     Indication: PAIN
     Route: 048
     Dates: start: 20130207
  9. MOVICOL [Concomitant]
     Indication: PROPHYLAXIS
     Route: 048
     Dates: start: 20130207
  10. NEXIUM [Concomitant]
     Indication: PROPHYLAXIS
     Dosage: 80 MILLIGRAM
     Route: 048
     Dates: start: 20130207
  11. T-ASS [Concomitant]
     Indication: THROMBOSIS PROPHYLAXIS
     Dosage: 100 MILLIGRAM
     Route: 048
     Dates: start: 20130207
  12. THYREX [Concomitant]
     Indication: THYROID THERAPY
     Dosage: 100 MILLIGRAM
     Route: 048
     Dates: start: 20130207
  13. XANOR [Concomitant]
     Indication: DEPRESSION
     Dosage: .5 MILLIGRAM
     Route: 048
     Dates: start: 20130207
  14. NEUROBION FORTE [Concomitant]
     Indication: PROPHYLAXIS
     Route: 048
     Dates: start: 20130207
  15. CAL-D-VITA [Concomitant]
     Indication: PROPHYLAXIS
     Route: 048
     Dates: start: 20130207
  16. XGEVA [Concomitant]
     Indication: OSTEOPOROSIS PROPHYLAXIS
     Route: 058
     Dates: start: 20130208, end: 20130208
  17. SIMVASTATIN [Concomitant]
     Indication: HYPERCHOLESTEROLAEMIA
     Dosage: 40 MILLIGRAM
     Route: 058
     Dates: start: 20130207
  18. CYMBALTA [Concomitant]
     Indication: DEPRESSION
     Dosage: 60 MILLIGRAM
     Route: 048
     Dates: start: 20130207
  19. AUGMENTIN [Concomitant]
     Indication: PAIN
     Dosage: 3 GRAM
     Route: 048
     Dates: start: 20130207, end: 20130217
  20. ZARZIO [Concomitant]
     Indication: PROPHYLAXIS
     Route: 058
     Dates: start: 20130212, end: 20130212
  21. DOMINAL FORTE [Concomitant]
     Indication: PROPHYLAXIS
     Dosage: 40 MILLIGRAM
     Route: 048
     Dates: start: 20130207
  22. TEMESTA [Concomitant]
     Indication: DEPRESSION
     Dosage: 2.5 MILLIGRAM
     Route: 048
     Dates: start: 20130207
  23. MYOLASTAN [Concomitant]
     Indication: PROPHYLAXIS
     Dosage: 50 MILLIGRAM
     Route: 048
     Dates: start: 20130207
  24. ZOFRAN [Concomitant]
     Indication: NAUSEA
     Route: 048
     Dates: start: 20130209, end: 20130211
  25. ZOFRAN [Concomitant]
     Indication: VOMITING
  26. PASPERTIN [Concomitant]
     Indication: NAUSEA
     Route: 048
     Dates: start: 20130207, end: 20130209
  27. PASPERTIN [Concomitant]
     Indication: VOMITING
     Route: 041
     Dates: start: 20130207, end: 20130209

REACTIONS (7)
  - Breast cancer metastatic [Fatal]
  - Pneumonia [Fatal]
  - Sepsis [Fatal]
  - Diarrhoea [Recovered/Resolved]
  - Urinary tract infection [Recovered/Resolved]
  - Nausea [Recovered/Resolved]
  - Hypokalaemia [Recovered/Resolved]
